FAERS Safety Report 15680948 (Version 3)
Quarter: 2019Q2

REPORT INFORMATION
  Report Type: Spontaneous
  Country: US (occurrence: US)
  Receive Date: 20181203
  Receipt Date: 20190620
  Transmission Date: 20190711
  Serious: No
  Sender: FDA-Public Use
  Company Number: US-MYLANLABS-2018M1087762

PATIENT
  Sex: Female
  Weight: 47 kg

DRUGS (1)
  1. ONDANSETRON TABLETS, USP [Suspect]
     Active Substance: ONDANSETRON
     Indication: NAUSEA
     Dosage: UNK
     Route: 048
     Dates: start: 2018

REACTIONS (1)
  - Drug ineffective [Recovered/Resolved]
